FAERS Safety Report 7177543-3 (Version None)
Quarter: 2010Q4

REPORT INFORMATION
  Report Type: 
  Country: None (occurrence: None)
  Receive Date: 20101123
  Receipt Date: 20101019
  Transmission Date: 20110411
  Serious: No
  Sender: FDA-Public Use
  Company Number: 019950

PATIENT
  Sex: Female
  Weight: 53.5 kg

DRUGS (6)
  1. CIMZIA [Suspect]
     Indication: CROHN'S DISEASE
     Dosage: (400 MG 1X/2 WEEKS SUBCUTANEOUS)
     Route: 058
     Dates: start: 20101005
  2. PREDNISONE [Concomitant]
  3. IMURAN [Concomitant]
  4. ATENOLOL [Concomitant]
  5. TUMS /00193601/ [Concomitant]
  6. LIDODERM [Concomitant]

REACTIONS (11)
  - EPISTAXIS [None]
  - FATIGUE [None]
  - FEELING COLD [None]
  - FLUSHING [None]
  - HEADACHE [None]
  - HOT FLUSH [None]
  - INJECTION SITE PAIN [None]
  - INJECTION SITE SWELLING [None]
  - LETHARGY [None]
  - PELVIC PAIN [None]
  - VOMITING [None]
